FAERS Safety Report 15993683 (Version 1)
Quarter: 2019Q1

REPORT INFORMATION
  Report Type: Spontaneous
  Country: US (occurrence: US)
  Receive Date: 20190222
  Receipt Date: 20190222
  Transmission Date: 20190418
  Serious: Yes (Hospitalization, Other)
  Sender: FDA-Public Use
  Company Number: US-SA-2019SA047069

PATIENT
  Age: 88 Year

DRUGS (1)
  1. PLAVIX [Suspect]
     Active Substance: CLOPIDOGREL BISULFATE
     Indication: STENT PLACEMENT
     Dosage: UNK UNK, UNK

REACTIONS (13)
  - Meningioma [Unknown]
  - Brain neoplasm [Unknown]
  - Iliac artery occlusion [Unknown]
  - Cerebrovascular accident [Unknown]
  - Transient ischaemic attack [Unknown]
  - Myocardial infarction [Unknown]
  - Blood pressure abnormal [Unknown]
  - Bronchitis viral [Unknown]
  - Stress [Unknown]
  - Dizziness [Unknown]
  - Heart rate [Unknown]
  - Cardiac disorder [Unknown]
  - Dyspnoea [Unknown]
